FAERS Safety Report 5265267-9 (Version None)
Quarter: 2007Q1

REPORT INFORMATION
  Report Type: 
  Country: None (occurrence: None)
  Receive Date: 20061121
  Receipt Date: 20061019
  Transmission Date: 20070707
  Serious: No
  Sender: FDA-Public Use
  Company Number: TPA2006A01832

PATIENT
  Age: 32 Year
  Sex: Male
  Weight: 93.441 kg

DRUGS (7)
  1. ROZEREM [Suspect]
     Indication: INSOMNIA
     Dosage: PER ORAL
     Route: 048
  2. PERCOCET [Concomitant]
  3. ALLOPURINOL [Concomitant]
  4. MOBIC [Concomitant]
  5. CRESTOR [Concomitant]
  6. TRICOR [Concomitant]
  7. KLONOPIN [Concomitant]

REACTIONS (2)
  - INSOMNIA [None]
  - MENTAL DISORDER [None]
